FAERS Safety Report 5025259-1 (Version None)
Quarter: 2006Q2

REPORT INFORMATION
  Report Type: 
  Country: None (occurrence: None)
  Receive Date: 20060608
  Receipt Date: 20060608
  Transmission Date: 20061013
  Serious: Yes (Hospitalization)
  Sender: FDA-Public Use
  Company Number: None

PATIENT
  Age: 58 Year
  Sex: Male
  Weight: 78.9259 kg

DRUGS (14)
  1. DIGOXIN [Suspect]
     Indication: CARDIAC FAILURE CONGESTIVE
     Dosage: 0.125 MG   DAILY   PO
     Route: 048
     Dates: start: 20060501, end: 20060607
  2. IRON SULFATETHIAMIN COMPOUND TAB [Concomitant]
  3. AMIODARONE [Concomitant]
  4. GABAPENTIN [Concomitant]
  5. AVANDAI [Concomitant]
  6. HYDRALAZINE HCL [Concomitant]
  7. BACLOFEN [Concomitant]
  8. HYDROCODONE [Concomitant]
  9. COMBIVENT [Concomitant]
  10. COREG [Concomitant]
  11. NEXIUM [Concomitant]
  12. NOVOLIN R [Concomitant]
  13. ZOCOR [Concomitant]
  14. DIGOXIN [Concomitant]

REACTIONS (9)
  - ANOREXIA [None]
  - BRADYCARDIA [None]
  - CHILLS [None]
  - DIZZINESS [None]
  - FEELING COLD [None]
  - MALAISE [None]
  - NAUSEA [None]
  - RHYTHM IDIOVENTRICULAR [None]
  - THERAPEUTIC AGENT TOXICITY [None]
